FAERS Safety Report 7741081-7 (Version None)
Quarter: 2011Q3

REPORT INFORMATION
  Report Type: 
  Country: None (occurrence: None)
  Receive Date: 20110909
  Receipt Date: 20110831
  Transmission Date: 20111222
  Serious: Yes (Hospitalization)
  Sender: FDA-Public Use
  Company Number: IT-BAYER-2011-079935

PATIENT
  Age: 86 Year
  Sex: Female

DRUGS (13)
  1. CIPROFLAXACIN [Suspect]
     Indication: ENTERITIS INFECTIOUS
     Dosage: DAILY DOSE 500 MG
     Route: 048
     Dates: start: 20110806, end: 20110821
  2. GABAPENTIN [Concomitant]
  3. ALLOPURINOL [Concomitant]
  4. CITALOPRAM HYDROBROMIDE [Concomitant]
  5. XALATAN [Concomitant]
  6. DIAMICRON [Concomitant]
     Indication: DIABETES MELLITUS
  7. LASIX [Concomitant]
     Indication: HYPERTENSION
  8. RABEPRAZOLE SODIUM [Concomitant]
  9. MOVIPREP [Concomitant]
  10. FERROGRAD C [FERROUS SULFATE,SODIUM ASCORBATE] [Concomitant]
  11. FOLINA [Concomitant]
     Route: 048
  12. LACTEC G [Concomitant]
  13. ACETAMINOPHEN [Concomitant]

REACTIONS (3)
  - HALLUCINATION [None]
  - SOPOR [None]
  - CONFUSIONAL STATE [None]
